FAERS Safety Report 11869872 (Version 2)
Quarter: 2015Q4

REPORT INFORMATION
  Report Type: Spontaneous
  Country: JP (occurrence: JP)
  Receive Date: 20151228
  Receipt Date: 20151229
  Transmission Date: 20160305
  Serious: Yes (Hospitalization)
  Sender: FDA-Public Use
  Company Number: JP-ROCHE-1684352

PATIENT
  Age: 29 Year
  Sex: Female

DRUGS (6)
  1. RIVOTRIL [Suspect]
     Active Substance: CLONAZEPAM
     Indication: SCHIZOPHRENIA
     Dosage: THE FRACTIONATION DOSE FREQUENCY IS UNCERTAIN.
     Route: 048
     Dates: start: 201512
  2. BROTIZOLAM [Concomitant]
     Active Substance: BROTIZOLAM
     Dosage: DOSAGE IS UNCERTAIN.
     Route: 065
  3. MAGMITT [Concomitant]
     Active Substance: MAGNESIUM OXIDE
     Dosage: DOSAGE IS UNCERTAIN.
     Route: 065
  4. LIMAS [Concomitant]
     Active Substance: LITHIUM CARBONATE
     Dosage: DOSAGE IS UNCERTAIN.
     Route: 065
  5. RIVOTRIL [Suspect]
     Active Substance: CLONAZEPAM
     Indication: SCHIZOPHRENIA
     Dosage: THE FRACTIONATION DOSE FREQUENCY IS UNCERTAIN.
     Route: 048
     Dates: end: 201512
  6. CLOZARIL [Concomitant]
     Active Substance: CLOZAPINE
     Dosage: DOSAGE IS UNCERTAIN.
     Route: 065

REACTIONS (3)
  - Off label use [Unknown]
  - Ileus [Unknown]
  - Pyrexia [Unknown]

NARRATIVE: CASE EVENT DATE: 201512
